FAERS Safety Report 10472371 (Version 2)
Quarter: 2014Q3

REPORT INFORMATION
  Report Type: Report from Study
  Country: FR (occurrence: FR)
  Receive Date: 20140924
  Receipt Date: 20140924
  Transmission Date: 20150326
  Serious: No
  Sender: FDA-Public Use
  Company Number: PHHY2013FR096377

PATIENT
  Sex: Female

DRUGS (1)
  1. AMN107 [Suspect]
     Active Substance: NILOTINIB
     Dosage: FOETAL EXPOSURE VIA FATHER

REACTIONS (2)
  - Exposure via father [Unknown]
  - Normal newborn [Unknown]
